FAERS Safety Report 4693780-1 (Version None)
Quarter: 2005Q2

REPORT INFORMATION
  Report Type: 
  Country: None (occurrence: None)
  Receive Date: 20050616
  Receipt Date: 20050603
  Transmission Date: 20051028
  Serious: Yes (Other)
  Sender: FDA-Public Use
  Company Number: 2005082745

PATIENT
  Age: 56 Year
  Sex: Female

DRUGS (1)
  1. DOSTINEX [Suspect]
     Indication: PROLACTINOMA
     Dosage: (3/4 TABLET A WEEK)
     Dates: start: 20040201

REACTIONS (1)
  - FOCAL NODULAR HYPERPLASIA [None]
